FAERS Safety Report 15312915 (Version 1)
Quarter: 2018Q3

REPORT INFORMATION
  Report Type: Spontaneous
  Country: AU (occurrence: AU)
  Receive Date: 20180823
  Receipt Date: 20180823
  Transmission Date: 20181010
  Serious: Yes (Hospitalization, Other)
  Sender: FDA-Public Use
  Company Number: AU-INGENUS PHARMACEUTICALS NJ, LLC-ING201808-000873

PATIENT
  Age: 31 Year
  Sex: Male

DRUGS (4)
  1. IBUPROFEN. [Suspect]
     Active Substance: IBUPROFEN
  2. IBUPROFEN. [Suspect]
     Active Substance: IBUPROFEN
  3. CARISOPRODOL, ASPIRIN AND CODEINE PHOSPHATE [Suspect]
     Active Substance: ASPIRIN\CARISOPRODOL\CODEINE PHOSPHATE
  4. CARISOPRODOL, ASPIRIN AND CODEINE PHOSPHATE [Suspect]
     Active Substance: ASPIRIN\CARISOPRODOL\CODEINE PHOSPHATE

REACTIONS (4)
  - Chronic kidney disease [Recovering/Resolving]
  - End stage renal disease [Recovered/Resolved]
  - Nephropathy toxic [Recovered/Resolved]
  - Drug abuse [Recovered/Resolved]
